FAERS Safety Report 9775995 (Version 1)
Quarter: 2013Q4

REPORT INFORMATION
  Report Type: Spontaneous
  Country: US (occurrence: US)
  Receive Date: 20131220
  Receipt Date: 20131220
  Transmission Date: 20140711
  Serious: No
  Sender: FDA-Public Use
  Company Number: -SAAVPROD-THYR-1000911

PATIENT
  Age: 37 Year
  Sex: Female

DRUGS (2)
  1. THYROTROPIN ALFA [Suspect]
     Indication: DIAGNOSTIC PROCEDURE
     Dosage: 0.9 MG, QD
     Route: 065
     Dates: start: 20130415, end: 20130416
  2. IODINE (131 I) [Concomitant]
     Indication: DIAGNOSTIC PROCEDURE
     Dosage: UNK
     Route: 065
     Dates: start: 20130417

REACTIONS (1)
  - Vaginal discharge [Not Recovered/Not Resolved]
